FAERS Safety Report 9412553 (Version 1)
Quarter: 2013Q3

REPORT INFORMATION
  Report Type: Report from Study
  Country: CA (occurrence: CA)
  Receive Date: 20130722
  Receipt Date: 20130722
  Transmission Date: 20140515
  Serious: Yes (Death, Other)
  Sender: FDA-Public Use
  Company Number: CA-ROCHE-1249532

PATIENT
  Age: 49 Year
  Sex: Male

DRUGS (14)
  1. MYCOPHENOLATE MOFETIL [Suspect]
     Indication: PRODUCT USED FOR UNKNOWN INDICATION
     Route: 048
  2. DELTASONE [Suspect]
     Indication: PRODUCT USED FOR UNKNOWN INDICATION
     Route: 065
  3. PROGRAF [Suspect]
     Indication: PRODUCT USED FOR UNKNOWN INDICATION
     Route: 048
  4. SOLU-MEDROL [Suspect]
     Indication: PRODUCT USED FOR UNKNOWN INDICATION
     Route: 065
  5. ASA [Concomitant]
     Route: 065
  6. ATIVAN [Concomitant]
     Route: 065
  7. HEPARIN SODIUM [Concomitant]
     Dosage: SOLUTION INTRAVENOUS
     Route: 065
  8. LASIX [Concomitant]
     Route: 065
  9. LOPRESOR [Concomitant]
     Route: 065
  10. MYCOSTATIN [Concomitant]
     Route: 065
  11. PREVACID [Concomitant]
     Route: 065
  12. RAPAMUNE [Concomitant]
     Route: 065
  13. SEPTRA [Concomitant]
     Route: 065
  14. VALGANCICLOVIR HYDROCHLORIDE [Concomitant]
     Route: 065

REACTIONS (15)
  - Acute myocardial infarction [Fatal]
  - Arteriosclerosis coronary artery [Fatal]
  - Asthenia [Fatal]
  - Cardiac enzymes increased [Fatal]
  - Cardio-respiratory arrest [Fatal]
  - Cerebral haemorrhage [Fatal]
  - Convulsion [Fatal]
  - Hepatic enzyme increased [Fatal]
  - Hypotension [Fatal]
  - Hypoxia [Fatal]
  - Hypoxic-ischaemic encephalopathy [Fatal]
  - Loss of consciousness [Fatal]
  - Renal impairment [Fatal]
  - Toxicity to various agents [Fatal]
  - VIIth nerve paralysis [Fatal]
